FAERS Safety Report 5375329-3 (Version None)
Quarter: 2007Q2

REPORT INFORMATION
  Report Type: 
  Country: None (occurrence: None)
  Receive Date: 20070629
  Receipt Date: 20060818
  Transmission Date: 20071010
  Serious: Yes (Death)
  Sender: FDA-Public Use
  Company Number: US-PFIZER INC-2006001056

PATIENT
  Sex: Female
  Weight: 174.6 kg

DRUGS (2)
  1. CELEBREX [Suspect]
     Indication: ARTHRITIS
     Dates: start: 20010504, end: 20031211
  2. CELEBREX [Suspect]
     Indication: FIBROMYALGIA

REACTIONS (1)
  - MYOCARDIAL INFARCTION [None]
